FAERS Safety Report 9209594 (Version 1)
Quarter: 2013Q1

REPORT INFORMATION
  Report Type: Spontaneous
  Country: US (occurrence: None)
  Receive Date: 20120820
  Receipt Date: 20120820
  Transmission Date: 20140127
  Serious: Yes (Hospitalization)
  Sender: FDA-Public Use
  Company Number: 1000031070

PATIENT
  Age: 60 Year
  Sex: Female

DRUGS (3)
  1. VIIBRYD [Suspect]
     Indication: DEPRESSION
     Route: 048
     Dates: start: 20120501, end: 20120507
  2. NEURONTIN(GABAPENTIN)(GABAPENTIN) [Concomitant]
  3. RITALIN (METHYLPHE-NIDATE HYDROCHLORIDE) (METHYLPHENIDATE HYDROCHLORIDE) [Concomitant]

REACTIONS (1)
  - Overdose [None]
